FAERS Safety Report 10297071 (Version 2)
Quarter: 2014Q3

REPORT INFORMATION
  Report Type: Report from Study
  Country: AU (occurrence: AU)
  Receive Date: 20140711
  Receipt Date: 20140731
  Transmission Date: 20150326
  Serious: No
  Sender: FDA-Public Use
  Company Number: AU-ROCHE-1429826

PATIENT
  Age: 57 Year
  Sex: Female
  Weight: 74 kg

DRUGS (11)
  1. HYDROCORTISONE. [Concomitant]
     Active Substance: HYDROCORTISONE
     Route: 042
     Dates: start: 20140228
  2. PALONOSETRON [Concomitant]
     Active Substance: PALONOSETRON
     Route: 042
     Dates: start: 20140228, end: 20140611
  3. RITUXIMAB [Suspect]
     Active Substance: RITUXIMAB
     Indication: DIFFUSE LARGE B-CELL LYMPHOMA
     Dosage: AS PER PROTOCOL: 375 MG/M2 , DAY 1 CYCLES 1-4
     Route: 042
  4. METOCLOPRAMIDE. [Concomitant]
     Active Substance: METOCLOPRAMIDE
     Indication: NAUSEA
     Route: 048
     Dates: start: 20140228, end: 20140723
  5. PANTOPRAZOLE [Concomitant]
     Active Substance: PANTOPRAZOLE SODIUM
     Route: 048
     Dates: start: 20140228
  6. MIDAZOLAM [Concomitant]
     Active Substance: MIDAZOLAM\MIDAZOLAM HYDROCHLORIDE
     Route: 042
     Dates: start: 20140221, end: 20140221
  7. LORATADINE. [Concomitant]
     Active Substance: LORATADINE
     Route: 048
     Dates: start: 20140228, end: 20140723
  8. CEPHALEXIN. [Concomitant]
     Active Substance: CEPHALEXIN
     Route: 048
     Dates: start: 20140416
  9. ALLOPURINOL. [Concomitant]
     Active Substance: ALLOPURINOL
     Route: 048
     Dates: start: 20140228, end: 20140630
  10. PEGFILGRASTIM [Concomitant]
     Active Substance: PEGFILGRASTIM
     Route: 058
     Dates: start: 20140228, end: 20140612
  11. CHOLECALCIFEROL [Concomitant]
     Active Substance: CHOLECALCIFEROL
     Route: 048
     Dates: start: 20140310

REACTIONS (1)
  - Erythema [Not Recovered/Not Resolved]

NARRATIVE: CASE EVENT DATE: 20140625
